FAERS Safety Report 13733142 (Version 1)
Quarter: 2017Q3

REPORT INFORMATION
  Report Type: Spontaneous
  Country: US (occurrence: US)
  Receive Date: 20170707
  Receipt Date: 20170707
  Transmission Date: 20171127
  Serious: Yes (Other)
  Sender: FDA-Public Use
  Company Number: US-ROCHE-670615

PATIENT
  Age: 62 Year
  Sex: Male

DRUGS (2)
  1. CYTOVENE IV [Suspect]
     Active Substance: GANCICLOVIR SODIUM
     Route: 042
  2. CYTOVENE IV [Suspect]
     Active Substance: GANCICLOVIR SODIUM
     Indication: PRODUCT USED FOR UNKNOWN INDICATION
     Route: 042

REACTIONS (1)
  - Anaphylactic reaction [Unknown]
